FAERS Safety Report 7249400-5 (Version None)
Quarter: 2011Q1

REPORT INFORMATION
  Report Type: 
  Country: None (occurrence: None)
  Receive Date: 20110128
  Receipt Date: 20101116
  Transmission Date: 20110831
  Serious: Yes (Hospitalization, Other)
  Sender: FDA-Public Use
  Company Number: US-BAYER-201028843NA

PATIENT
  Sex: Female
  Weight: 86.168 kg

DRUGS (6)
  1. YAZ [Suspect]
     Indication: ACNE
     Dosage: 1 TAB / DAY
  2. PROPRANOLOL [Concomitant]
     Dosage: UNK
     Dates: start: 20080101, end: 20090101
  3. YASMIN [Suspect]
     Indication: CONTRACEPTION
  4. OCELLA [Suspect]
  5. YASMIN [Suspect]
     Indication: ACNE
     Dosage: UNK
  6. NUVARING [Concomitant]
     Dosage: UNK
     Dates: start: 20081017

REACTIONS (2)
  - BILIARY COLIC [None]
  - ABDOMINAL PAIN UPPER [None]
